FAERS Safety Report 11325866 (Version 1)
Quarter: 2015Q3

REPORT INFORMATION
  Report Type: Spontaneous
  Country: IT (occurrence: IT)
  Receive Date: 20150731
  Receipt Date: 20150731
  Transmission Date: 20151125
  Serious: Yes (Hospitalization)
  Sender: FDA-Public Use
  Company Number: IT-009507513-1507ITA012762

PATIENT
  Age: 44 Year
  Sex: Male
  Weight: 180 kg

DRUGS (10)
  1. PANTORC [Concomitant]
     Active Substance: PANTOPRAZOLE SODIUM
     Dosage: UNKNOWN
  2. LAEVOLAC [Concomitant]
     Active Substance: LACTULOSE
     Dosage: UNKNOWN
  3. INDERAL [Concomitant]
     Active Substance: PROPRANOLOL HYDROCHLORIDE
     Dosage: 10 MG, (UNSPECIFIED FREQUENCY)
  4. NORMIX [Concomitant]
     Active Substance: RIFAXIMIN
     Dosage: UNKNOWN
     Route: 048
  5. REBETOL [Suspect]
     Active Substance: RIBAVIRIN
     Dosage: 800 MG, QD(DAILY)
     Route: 048
     Dates: start: 20150721
  6. REBETOL [Suspect]
     Active Substance: RIBAVIRIN
     Indication: HEPATIC CIRRHOSIS
     Dosage: 1200 MG, QD (DAILY)
     Route: 048
     Dates: start: 20150612, end: 20150706
  7. SOVALDI [Suspect]
     Active Substance: SOFOSBUVIR
     Indication: HEPATIC CIRRHOSIS
     Dosage: 400 MG, QD(DAILY)
     Route: 048
     Dates: start: 20150612
  8. LUVION (CANRENONE) [Concomitant]
     Active Substance: CANRENONE
     Dosage: 100 MG,( UNSPECIFIED FREQUENCY)
     Route: 048
  9. REBETOL [Suspect]
     Active Substance: RIBAVIRIN
     Dosage: 1000 MG, QD(DAILY)
     Route: 048
     Dates: start: 20150707, end: 20150720
  10. OLYSIO [Suspect]
     Active Substance: SIMEPREVIR
     Indication: HEPATIC CIRRHOSIS
     Dosage: 150 MG, QD(DAILY)
     Route: 048
     Dates: start: 20150612

REACTIONS (2)
  - Hyperbilirubinaemia [Not Recovered/Not Resolved]
  - Portal vein thrombosis [Not Recovered/Not Resolved]

NARRATIVE: CASE EVENT DATE: 20150707
